FAERS Safety Report 5590352-1 (Version None)
Quarter: 2008Q1

REPORT INFORMATION
  Report Type: 
  Country: None (occurrence: None)
  Receive Date: 20080109
  Receipt Date: 20080104
  Transmission Date: 20080703
  Serious: Yes (Other)
  Sender: FDA-Public Use
  Company Number: 2008RL000003

PATIENT
  Age: 76 Year
  Sex: Female
  Weight: 47.6277 kg

DRUGS (6)
  1. LOVAZA [Suspect]
     Indication: DRUG USE FOR UNKNOWN INDICATION
     Dosage: 1 GM; BID; PO
     Route: 048
     Dates: start: 20071204, end: 20071223
  2. COUMADIN [Concomitant]
  3. LEVOXYL [Concomitant]
  4. WELCHOL [Concomitant]
  5. COREG [Concomitant]
  6. AVAPRO [Concomitant]

REACTIONS (1)
  - ATRIAL FIBRILLATION [None]
